FAERS Safety Report 11372128 (Version 1)
Quarter: 2015Q3

REPORT INFORMATION
  Report Type: Spontaneous
  Country: US (occurrence: US)
  Receive Date: 20150812
  Receipt Date: 20150812
  Transmission Date: 20151125
  Serious: No
  Sender: FDA-Public Use
  Company Number: US-TOLMAR INC.-1041069

PATIENT
  Sex: Male

DRUGS (2)
  1. ADAPALENE. [Suspect]
     Active Substance: ADAPALENE
     Indication: ALOPECIA
     Route: 061
  2. ADAPALENE. [Suspect]
     Active Substance: ADAPALENE
     Indication: ACNE
     Route: 061

REACTIONS (1)
  - Drug ineffective [Unknown]
